FAERS Safety Report 9053780 (Version 1)
Quarter: 2013Q1

REPORT INFORMATION
  Report Type: Spontaneous
  Country: US (occurrence: None)
  Receive Date: 20130201
  Receipt Date: 20130201
  Transmission Date: 20140127
  Serious: Yes (Hospitalization)
  Sender: FDA-Public Use
  Company Number: None

PATIENT
  Age: 0 Day
  Sex: Male
  Weight: 93.1 kg

DRUGS (5)
  1. CLINDAMYCIN 150MG GREENSTONE [Suspect]
     Route: 048
     Dates: start: 20130101, end: 20130115
  2. HCTZ 25MG - 1 TABLET PO DAILY [Concomitant]
  3. FLOVENT 110MCG - 2 PUFFS BID [Concomitant]
  4. PROVENTIL HFA - 1-2 PUFFS Q6H PRN [Concomitant]
  5. NORVASC 10MG - 1/2 TABLET PO DAILY [Concomitant]

REACTIONS (2)
  - Rash pruritic [None]
  - Rash [None]
